FAERS Safety Report 5706990-9 (Version None)
Quarter: 2008Q2

REPORT INFORMATION
  Report Type: 
  Country: None (occurrence: None)
  Receive Date: 20080416
  Receipt Date: 20080409
  Transmission Date: 20081010
  Serious: Yes (Hospitalization)
  Sender: FDA-Public Use
  Company Number: FR-RB-000752-08

PATIENT
  Sex: Female

DRUGS (2)
  1. SUBUTEX [Suspect]
     Indication: DRUG WITHDRAWAL MAINTENANCE THERAPY
     Dosage: DOSAGE UNKNOWN
     Route: 042
  2. SUBUTEX [Suspect]
     Dosage: DOSAGE UNKNOWN
     Route: 048

REACTIONS (4)
  - DRUG EXPOSURE DURING PREGNANCY [None]
  - INCORRECT ROUTE OF DRUG ADMINISTRATION [None]
  - SUBCUTANEOUS ABSCESS [None]
  - SUBSTANCE ABUSE [None]
